FAERS Safety Report 13759077 (Version 1)
Quarter: 2017Q3

REPORT INFORMATION
  Report Type: Spontaneous
  Country: US (occurrence: US)
  Receive Date: 20170717
  Receipt Date: 20170717
  Transmission Date: 20171127
  Serious: Yes (Other)
  Sender: FDA-Public Use
  Company Number: US-AUROBINDO-AUR-APL-2017-36954

PATIENT
  Sex: Female

DRUGS (1)
  1. PREDNISONE. [Suspect]
     Active Substance: PREDNISONE
     Indication: IMMUNOSUPPRESSANT DRUG THERAPY
     Route: 065

REACTIONS (7)
  - Hemiparesis [Unknown]
  - Gait disturbance [Unknown]
  - Hemianopia [Unknown]
  - Cranial nerve disorder [Unknown]
  - Encephalitis [Unknown]
  - Post transplant lymphoproliferative disorder [Unknown]
  - Dysmetria [Unknown]
